FAERS Safety Report 10085665 (Version 1)
Quarter: 2014Q2

REPORT INFORMATION
  Report Type: Spontaneous
  Country: CA (occurrence: CA)
  Receive Date: 20140418
  Receipt Date: 20140418
  Transmission Date: 20141212
  Serious: Yes (Hospitalization)
  Sender: FDA-Public Use
  Company Number: CA-AMGEN-CANSP2014027749

PATIENT
  Age: 52 Year
  Sex: Female

DRUGS (7)
  1. ENBREL [Suspect]
     Indication: PSORIATIC ARTHROPATHY
     Dosage: 50 MG, UNK
     Route: 065
     Dates: start: 20130814
  2. PLAVEX [Concomitant]
     Dosage: 75 MG DAILY
  3. METOPROLOL [Concomitant]
     Dosage: 12.5 MG TWICE DAILY
  4. RAMIPRIL [Concomitant]
     Dosage: 2.5MG DAILY
  5. ASA [Concomitant]
     Dosage: 81 MG DAILY
  6. LIPITOR [Concomitant]
     Dosage: 80 MG DAILY
  7. ZANTAC [Concomitant]
     Dosage: 150 MG TWICE DAILY

REACTIONS (3)
  - Myocardial infarction [Recovered/Resolved]
  - Rash pustular [Recovered/Resolved]
  - Dermatitis infected [Recovered/Resolved]
